FAERS Safety Report 8094943 (Version 3)
Quarter: 2014Q1

REPORT INFORMATION
  Report Type: Spontaneous
  Country: US (occurrence: US)
  Receive Date: 20110817
  Receipt Date: 20140328
  Transmission Date: 20141002
  Serious: Yes (Other)
  Sender: FDA-Public Use
  Company Number: US-ASTRAZENECA-2009UW04678

PATIENT
  Age: 55 Year
  Sex: Female
  Weight: 74.4 kg

DRUGS (8)
  1. NEXIUM [Suspect]
     Indication: GASTROOESOPHAGEAL REFLUX DISEASE
     Route: 048
     Dates: start: 1999, end: 2001
  2. NEXIUM [Suspect]
     Indication: HIATUS HERNIA
     Route: 048
     Dates: start: 1999, end: 2001
  3. NEXIUM [Suspect]
     Indication: GASTROOESOPHAGEAL REFLUX DISEASE
     Route: 048
     Dates: start: 2001, end: 20140316
  4. NEXIUM [Suspect]
     Indication: HIATUS HERNIA
     Route: 048
     Dates: start: 2001, end: 20140316
  5. PRILOSEC [Suspect]
     Indication: GASTROOESOPHAGEAL REFLUX DISEASE
     Route: 048
  6. PRILOSEC [Suspect]
     Indication: HIATUS HERNIA
     Route: 048
  7. PRILOSEC OTC [Suspect]
     Route: 048
  8. CHLORTHALID [Concomitant]
     Indication: BLOOD PRESSURE ABNORMAL
     Route: 048
     Dates: start: 20140316

REACTIONS (9)
  - Lip and/or oral cavity cancer [Recovered/Resolved]
  - Gastrooesophageal reflux disease [Unknown]
  - Muscle spasms [Recovered/Resolved]
  - Sleep disorder due to general medical condition, insomnia type [Not Recovered/Not Resolved]
  - Regurgitation [Not Recovered/Not Resolved]
  - Drug ineffective [Recovered/Resolved]
  - Drug effect incomplete [Unknown]
  - Drug dose omission [Not Recovered/Not Resolved]
  - Intentional drug misuse [Unknown]
